FAERS Safety Report 11859272 (Version 1)
Quarter: 2015Q4

REPORT INFORMATION
  Report Type: Spontaneous
  Country: US (occurrence: US)
  Receive Date: 20151221
  Receipt Date: 20151221
  Transmission Date: 20160305
  Serious: Yes (Other)
  Sender: FDA-Public Use
  Company Number: US-PROCTER_AND_GAMBLE-GS15037737

PATIENT

DRUGS (3)
  1. CREST 3D WHITE BRILLIANCE [Suspect]
     Active Substance: SODIUM FLUORIDE
     Route: 002
  2. CRESTORALRINSE3DWHITEWHTNG [Suspect]
     Active Substance: HYDROGEN PEROXIDE\SODIUM FLUORIDE
  3. CRESTDENTIFRICE3DWHITEBRILBOOST [Suspect]
     Active Substance: SODIUM POLYMETAPHOSPHATE

REACTIONS (3)
  - Toothache [Recovering/Resolving]
  - Gingival pain [Recovering/Resolving]
  - Sensitivity of teeth [Recovering/Resolving]
